FAERS Safety Report 9455013 (Version 4)
Quarter: 2013Q4

REPORT INFORMATION
  Report Type: Spontaneous
  Country: US (occurrence: US)
  Receive Date: 20130813
  Receipt Date: 20131122
  Transmission Date: 20140711
  Serious: No
  Sender: FDA-Public Use
  Company Number: US-BIOGENIDEC-2013BI074379

PATIENT
  Age: 50 Year
  Sex: Female

DRUGS (4)
  1. TYSABRI [Suspect]
     Indication: MULTIPLE SCLEROSIS
     Route: 042
     Dates: start: 20120604
  2. AVONEX [Concomitant]
     Indication: MULTIPLE SCLEROSIS
     Route: 030
  3. AVONEX [Concomitant]
     Indication: MULTIPLE SCLEROSIS
     Route: 030
  4. ACTHAR GEL [Concomitant]

REACTIONS (24)
  - Muscle spasticity [Not Recovered/Not Resolved]
  - Back pain [Not Recovered/Not Resolved]
  - Urinary retention [Not Recovered/Not Resolved]
  - Skin irritation [Unknown]
  - Amnesia [Unknown]
  - Vein disorder [Unknown]
  - Vascular pain [Unknown]
  - Venous injury [Unknown]
  - Injection site haemorrhage [Unknown]
  - Dermatitis contact [Unknown]
  - Therapeutic procedure [Unknown]
  - Visual impairment [Unknown]
  - Stress [Unknown]
  - Pain [Unknown]
  - Haemorrhage [Recovered/Resolved]
  - Central nervous system lesion [Not Recovered/Not Resolved]
  - Calcinosis [Unknown]
  - Weight increased [Unknown]
  - Myalgia [Unknown]
  - Urticaria [Unknown]
  - Lymphocyte count increased [Unknown]
  - Nasopharyngitis [Unknown]
  - Drug effect decreased [Unknown]
  - Pyrexia [Unknown]
